FAERS Safety Report 11359956 (Version 3)
Quarter: 2015Q3

REPORT INFORMATION
  Report Type: Spontaneous
  Country: US (occurrence: US)
  Receive Date: 20150810
  Receipt Date: 20150911
  Transmission Date: 20151125
  Serious: No
  Sender: FDA-Public Use
  Company Number: US-LEO PHARMA-236082

PATIENT
  Age: 71 Year
  Sex: Male

DRUGS (2)
  1. DAIVOBET [Suspect]
     Active Substance: BETAMETHASONE DIPROPIONATE\CALCIPOTRIENE
     Indication: PSORIASIS
     Route: 061
     Dates: start: 20150731
  2. DAIVOBET [Suspect]
     Active Substance: BETAMETHASONE DIPROPIONATE\CALCIPOTRIENE
     Indication: PSORIASIS

REACTIONS (4)
  - Application site discolouration [Recovering/Resolving]
  - Inappropriate schedule of drug administration [Unknown]
  - Drug prescribing error [Unknown]
  - Chemical burn of skin [Recovering/Resolving]
